FAERS Safety Report 5107434-0 (Version None)
Quarter: 2006Q3

REPORT INFORMATION
  Report Type: 
  Country: None (occurrence: None)
  Receive Date: 20060731
  Receipt Date: 20060402
  Transmission Date: 20061208
  Serious: No
  Sender: FDA-Public Use
  Company Number: 2006PV011366

PATIENT
  Age: 61 Year
  Sex: Female
  Weight: 79.3795 kg

DRUGS (6)
  1. BYETTA [Suspect]
     Indication: DIABETES MELLITUS NON-INSULIN-DEPENDENT
     Dosage: 5 MCG BID SC
     Route: 058
     Dates: start: 20060323, end: 20060326
  2. BYETTA [Suspect]
     Indication: DIABETES MELLITUS NON-INSULIN-DEPENDENT
     Dosage: 5 MCG BID SC
     Route: 058
     Dates: start: 20060331, end: 20060401
  3. BYETTA [Suspect]
     Indication: DIABETES MELLITUS NON-INSULIN-DEPENDENT
     Dosage: 5 MCG BID SC
     Route: 058
     Dates: start: 20060403, end: 20060404
  4. BYETTA [Suspect]
     Indication: DIABETES MELLITUS NON-INSULIN-DEPENDENT
     Dosage: 5 MCG BID SC
     Route: 058
     Dates: start: 20060413
  5. FORTAMET [Suspect]
     Dosage: 500 MG; QPM
     Dates: start: 20060323, end: 20060402
  6. GLUCOPHAGE [Concomitant]

REACTIONS (3)
  - CONJUNCTIVITIS ALLERGIC [None]
  - HEADACHE [None]
  - RASH [None]
